FAERS Safety Report 25572423 (Version 1)
Quarter: 2025Q3

REPORT INFORMATION
  Report Type: Spontaneous
  Country: EU (occurrence: EU)
  Receive Date: 20250717
  Receipt Date: 20250717
  Transmission Date: 20251020
  Serious: Yes (Death, Hospitalization, Other)
  Sender: FERRING
  Company Number: EU-FERRINGPH-2025FE03629

PATIENT

DRUGS (5)
  1. CHORIONIC GONADOTROPHIN [Suspect]
     Active Substance: CHORIOGONADOTROPIN ALFA
     Indication: Drug abuse
     Route: 051
  2. MESTEROLONE [Suspect]
     Active Substance: MESTEROLONE
     Indication: Drug abuse
     Route: 065
  3. DECA-DURABOLIN [Suspect]
     Active Substance: NANDROLONE DECANOATE
     Indication: Drug abuse
     Route: 065
  4. NOLVADEX [Suspect]
     Active Substance: TAMOXIFEN CITRATE
     Indication: Drug abuse
     Route: 065
  5. DIANABOL [Suspect]
     Active Substance: METHANDROSTENOLONE
     Indication: Drug abuse
     Route: 065

REACTIONS (5)
  - Acute hepatitis B [Fatal]
  - Hepatitis toxic [Fatal]
  - Ventricular hypertrophy [Fatal]
  - Intentional product misuse [Unknown]
  - Product use in unapproved indication [Unknown]
